FAERS Safety Report 9812685 (Version 1)
Quarter: 2014Q1

REPORT INFORMATION
  Report Type: Spontaneous
  Country: IT (occurrence: IT)
  Receive Date: 20140113
  Receipt Date: 20140113
  Transmission Date: 20141002
  Serious: Yes (Other)
  Sender: FDA-Public Use
  Company Number: IT-TEVA-455237ISR

PATIENT
  Age: 64 Year
  Sex: Male

DRUGS (3)
  1. MYFENAX [Suspect]
     Indication: PROPHYLAXIS AGAINST TRANSPLANT REJECTION
     Dosage: 1000 GRAM DAILY;
     Route: 048
     Dates: start: 20131106
  2. ADVAGRAF [Concomitant]
  3. DELTACORTENE [Concomitant]

REACTIONS (2)
  - Lip oedema [Unknown]
  - Pruritus [Unknown]
